FAERS Safety Report 5307306-2 (Version None)
Quarter: 2007Q2

REPORT INFORMATION
  Report Type: 
  Country: None (occurrence: None)
  Receive Date: 20070425
  Receipt Date: 20070412
  Transmission Date: 20071010
  Serious: Yes (Other)
  Sender: FDA-Public Use
  Company Number: FR-ELI_LILLY_AND_COMPANY-FR200704003277

PATIENT
  Age: 83 Year
  Sex: Female

DRUGS (3)
  1. FORTEO [Suspect]
     Indication: OSTEOPOROSIS
     Dosage: 20 UG, DAILY (1/D)
     Route: 058
     Dates: start: 20070407, end: 20070412
  2. STEROGYL [Concomitant]
     Dosage: 5 GTT, DAILY (1/D)
     Route: 048
     Dates: end: 20070412
  3. CALCIUM [Concomitant]
     Dates: end: 20070412

REACTIONS (2)
  - HYPERCALCAEMIA [None]
  - RENAL FAILURE [None]
